FAERS Safety Report 6759838-8 (Version None)
Quarter: 2010Q2

REPORT INFORMATION
  Report Type: 
  Country: None (occurrence: None)
  Receive Date: 20100608
  Receipt Date: 20100528
  Transmission Date: 20101027
  Serious: Yes (Other)
  Sender: FDA-Public Use
  Company Number: CO-JNJFOC-20100505438

PATIENT
  Age: 40 Year
  Sex: Male

DRUGS (6)
  1. REMICADE [Suspect]
     Indication: SPONDYLITIS
     Route: 042
  2. METHOTREXATE [Concomitant]
  3. MESALAZINE [Concomitant]
  4. OMEPRAZOLE [Concomitant]
  5. IBUPROFEN [Concomitant]
  6. LORATADINE [Concomitant]

REACTIONS (1)
  - MASS [None]
